FAERS Safety Report 13676203 (Version 2)
Quarter: 2017Q3

REPORT INFORMATION
  Report Type: Report from Study
  Country: CA (occurrence: CA)
  Receive Date: 20170622
  Receipt Date: 20170823
  Transmission Date: 20171127
  Serious: No
  Sender: FDA-Public Use
  Company Number: CA-ROCHE-1916964

PATIENT
  Sex: Female
  Weight: 67 kg

DRUGS (8)
  1. ZANTAC [Concomitant]
     Active Substance: RANITIDINE HYDROCHLORIDE
     Route: 065
     Dates: start: 20170403
  2. AVASTIN [Suspect]
     Active Substance: BEVACIZUMAB
     Route: 042
     Dates: start: 20170420, end: 20170607
  3. LEUCOVORIN. [Suspect]
     Active Substance: LEUCOVORIN
     Indication: COLON CANCER METASTATIC
     Dosage: STOPPED AND LATER RESTARTED
     Route: 065
     Dates: start: 2014, end: 2017
  4. AVASTIN [Suspect]
     Active Substance: BEVACIZUMAB
     Indication: COLON CANCER METASTATIC
     Route: 042
     Dates: start: 2014, end: 201702
  5. IRINOTECAN [Suspect]
     Active Substance: IRINOTECAN
     Indication: COLON CANCER METASTATIC
     Route: 065
     Dates: start: 2014, end: 2017
  6. DEXAMETHASONE. [Concomitant]
     Active Substance: DEXAMETHASONE
     Route: 065
     Dates: start: 20170401
  7. FLUOROURACIL. [Suspect]
     Active Substance: FLUOROURACIL
     Indication: COLON CANCER METASTATIC
     Dosage: STOPPED AND LATER RESTARTED
     Route: 065
     Dates: start: 2014, end: 2017
  8. OXALIPLATIN. [Suspect]
     Active Substance: OXALIPLATIN
     Indication: COLON CANCER METASTATIC
     Route: 065
     Dates: start: 2014, end: 2017

REACTIONS (4)
  - Gastrooesophageal reflux disease [Unknown]
  - Infusion related reaction [Unknown]
  - Therapy non-responder [Unknown]
  - Drug ineffective [Unknown]
